FAERS Safety Report 18511549 (Version 2)
Quarter: 2020Q4

REPORT INFORMATION
  Report Type: Report from Study
  Country: FR (occurrence: FR)
  Receive Date: 20201117
  Receipt Date: 20201202
  Transmission Date: 20210114
  Serious: Yes (Death, Life-Threatening)
  Sender: FDA-Public Use
  Company Number: FR-BIOVITRUM-2020FR6334

PATIENT
  Age: 89 Year
  Sex: Female

DRUGS (5)
  1. LOVENOX [Concomitant]
     Active Substance: ENOXAPARIN SODIUM
     Indication: THROMBOSIS PROPHYLAXIS
     Dosage: 100 MG/0.67  ML
  2. KINERET [Suspect]
     Active Substance: ANAKINRA
     Indication: CORONAVIRUS INFECTION
     Dosage: 100 MG/0.67  ML
     Route: 042
     Dates: start: 20200419, end: 20200425
  3. KINERET [Suspect]
     Active Substance: ANAKINRA
     Dosage: 100 MG/0.67  ML
     Route: 042
     Dates: start: 20200425, end: 20200426
  4. KINERET [Suspect]
     Active Substance: ANAKINRA
     Dosage: 100 MG/0.67  ML
     Route: 042
     Dates: start: 20200426, end: 20200427
  5. KARDEGIC [Concomitant]
     Active Substance: ASPIRIN DL-LYSINE
     Indication: ATRIAL FIBRILLATION
     Dosage: 100 MG/0.67  ML
     Route: 048

REACTIONS (1)
  - Upper gastrointestinal haemorrhage [Fatal]

NARRATIVE: CASE EVENT DATE: 20200428
